FAERS Safety Report 5491439-4 (Version None)
Quarter: 2007Q4

REPORT INFORMATION
  Report Type: 
  Country: None (occurrence: None)
  Receive Date: 20071018
  Receipt Date: 20071003
  Transmission Date: 20080405
  Serious: Yes (Disabling)
  Sender: FDA-Public Use
  Company Number: 2007S1009834

PATIENT
  Age: 75 Year
  Sex: Female

DRUGS (6)
  1. NAPROXEN [Suspect]
     Indication: PELVIC PAIN
     Dosage: 250 MG; TWICE A DAY; ORAL
     Route: 048
     Dates: start: 20070806, end: 20070907
  2. ATENOLOL (CON.) [Concomitant]
  3. DICLOFENAC (CON.) [Concomitant]
  4. DOXYCYCLINE (CON.) [Concomitant]
  5. INDAPAMIDE HEMIHYDRATE (CON.) [Concomitant]
  6. OMEPRAZOLE (CON.) [Concomitant]

REACTIONS (4)
  - COUGH [None]
  - HYPERSENSITIVITY [None]
  - INCREASED BRONCHIAL SECRETION [None]
  - WHEEZING [None]
